FAERS Safety Report 9032287 (Version 1)
Quarter: 2013Q1

REPORT INFORMATION
  Report Type: Spontaneous
  Country: US (occurrence: US)
  Receive Date: 20130122
  Receipt Date: 20130122
  Transmission Date: 20140127
  Serious: No
  Sender: FDA-Public Use
  Company Number: US-BAYER-2013-006732

PATIENT
  Age: 50 Year
  Sex: Female

DRUGS (2)
  1. MIRENA [Suspect]
     Indication: MENORRHAGIA
     Dosage: 20 MCG/24HR, CONT
     Route: 015
     Dates: start: 20121221
  2. MULTIVITAMINS AND IRON [Concomitant]

REACTIONS (4)
  - Menorrhagia [None]
  - Pain [None]
  - Haemoglobin decreased [None]
  - Drug ineffective [None]
